FAERS Safety Report 10287099 (Version 2)
Quarter: 2014Q3

REPORT INFORMATION
  Report Type: Spontaneous
  Country: JP (occurrence: JP)
  Receive Date: 20140709
  Receipt Date: 20140724
  Transmission Date: 20150326
  Serious: Yes (Hospitalization, Other)
  Sender: FDA-Public Use
  Company Number: JP-JNJFOC-20140703999

PATIENT
  Age: 7 Decade
  Sex: Male

DRUGS (3)
  1. REBETOL [Suspect]
     Active Substance: RIBAVIRIN
     Indication: CHRONIC HEPATITIS C
     Route: 048
     Dates: start: 20140421, end: 20140629
  2. PEGINTRON [Suspect]
     Active Substance: PEGINTERFERON ALFA-2B
     Indication: CHRONIC HEPATITIS C
     Route: 058
     Dates: start: 20140421, end: 20140623
  3. SOVRIAD [Suspect]
     Active Substance: SIMEPREVIR
     Indication: CHRONIC HEPATITIS C
     Route: 048
     Dates: start: 20140421, end: 20140629

REACTIONS (7)
  - Cerebral infarction [Not Recovered/Not Resolved]
  - Cardiac failure [Unknown]
  - Atrial fibrillation [Unknown]
  - Dehydration [Unknown]
  - Anaemia [Unknown]
  - Pyrexia [Unknown]
  - Visual field defect [Unknown]

NARRATIVE: CASE EVENT DATE: 2014
